FAERS Safety Report 25944590 (Version 2)
Quarter: 2025Q4

REPORT INFORMATION
  Report Type: Spontaneous
  Country: US (occurrence: US)
  Receive Date: 20251021
  Receipt Date: 20251112
  Transmission Date: 20260118
  Serious: No
  Sender: PFIZER
  Company Number: US-PFIZER INC-202500039500

PATIENT
  Age: 73 Year
  Sex: Male

DRUGS (2)
  1. MEKTOVI [Suspect]
     Active Substance: BINIMETINIB
     Dosage: 15 MG, 2X/DAY
     Route: 048
  2. MEKTOVI [Suspect]
     Active Substance: BINIMETINIB
     Dosage: 30 MG, 2X/DAY (2 TABLETS) TWICE A DAY
     Route: 048

REACTIONS (4)
  - Taste disorder [Unknown]
  - Dry mouth [Unknown]
  - Off label use [Unknown]
  - Intercepted product selection error [Unknown]
